FAERS Safety Report 24327845 (Version 1)
Quarter: 2024Q3

REPORT INFORMATION
  Report Type: Report from Study
  Country: US (occurrence: US)
  Receive Date: 20240917
  Receipt Date: 20240917
  Transmission Date: 20241016
  Serious: Yes (Hospitalization)
  Sender: ABBVIE
  Company Number: US-ABBVIE-5920832

PATIENT
  Sex: Female

DRUGS (2)
  1. HUMIRA [Suspect]
     Active Substance: ADALIMUMAB
     Indication: Rheumatoid arthritis
     Dosage: CITRATE FREE
     Route: 058
     Dates: start: 20220216
  2. HUMIRA [Suspect]
     Active Substance: ADALIMUMAB
     Dosage: CITRATE FREE
     Route: 058
     Dates: start: 20240911

REACTIONS (6)
  - Dizziness [Recovering/Resolving]
  - COVID-19 [Recovering/Resolving]
  - Musculoskeletal stiffness [Recovering/Resolving]
  - Vision blurred [Recovering/Resolving]
  - Nasopharyngitis [Recovering/Resolving]
  - Brain fog [Unknown]
